FAERS Safety Report 10496666 (Version 1)
Quarter: 2014Q4

REPORT INFORMATION
  Report Type: Spontaneous
  Country: US (occurrence: US)
  Receive Date: 20141006
  Receipt Date: 20141006
  Transmission Date: 20150528
  Serious: Yes (Other)
  Sender: FDA-Public Use
  Company Number: US-ORION CORPORATION ORION PHARMA-ENT 2014-0157

PATIENT
  Age: 64 Year
  Sex: Male

DRUGS (4)
  1. CARBIDOPA AND LEVODOPA [Suspect]
     Active Substance: CARBIDOPA\LEVODOPA
     Indication: PARKINSON^S DISEASE
     Dosage: STRENGTH: 25/100 MG
     Route: 065
  2. ENTACAPONE. [Suspect]
     Active Substance: ENTACAPONE
     Indication: PARKINSON^S DISEASE
     Dosage: STRENGTH: 200 MG
     Route: 065
  3. CARBIDOPA AND LEVODOPA [Suspect]
     Active Substance: CARBIDOPA\LEVODOPA
     Dosage: STRENGTH: 25/100 MG
     Route: 065
  4. CARBIDOPA AND LEVODOPA [Suspect]
     Active Substance: CARBIDOPA\LEVODOPA
     Dosage: STRENGTH: 25/100 MG
     Route: 065

REACTIONS (9)
  - Stereotypy [Recovered/Resolved]
  - Dyskinesia [Recovered/Resolved]
  - Obsessive-compulsive disorder [Recovered/Resolved]
  - Mood altered [Unknown]
  - Panic attack [Unknown]
  - Memory impairment [Unknown]
  - Hallucination [Unknown]
  - Hypersexuality [Unknown]
  - Depression [Unknown]
